FAERS Safety Report 4909420-X (Version None)
Quarter: 2006Q1

REPORT INFORMATION
  Report Type: 
  Country: None (occurrence: None)
  Receive Date: 20060210
  Receipt Date: 20060210
  Transmission Date: 20060701
  Serious: Yes (Hospitalization)
  Sender: FDA-Public Use
  Company Number: None

PATIENT
  Age: 54 Year
  Sex: Male
  Weight: 88.3 kg

DRUGS (1)
  1. IBUPROFEN [Suspect]
     Indication: OSTEOARTHRITIS
     Dosage: 600MG  Q8H  PRN  PO  (DURATION: SEVERAL YEARS)
     Route: 048

REACTIONS (9)
  - ALCOHOLISM [None]
  - ANAEMIA [None]
  - BLOOD MAGNESIUM DECREASED [None]
  - BLOOD PHOSPHORUS DECREASED [None]
  - GASTRIC ULCER [None]
  - HELICOBACTER INFECTION [None]
  - INTERNATIONAL NORMALISED RATIO INCREASED [None]
  - REFUSAL OF TREATMENT BY PATIENT [None]
  - UPPER GASTROINTESTINAL HAEMORRHAGE [None]
